FAERS Safety Report 19684571 (Version 2)
Quarter: 2021Q3

REPORT INFORMATION
  Report Type: Spontaneous
  Country: CN (occurrence: CN)
  Receive Date: 20210811
  Receipt Date: 20210820
  Transmission Date: 20211014
  Serious: Yes (Hospitalization, Other)
  Sender: FDA-Public Use
  Company Number: CN-GLAXOSMITHKLINE-CNCH2021APC052987

PATIENT
  Age: 34 Year
  Sex: Male
  Weight: 85 kg

DRUGS (1)
  1. IBUPROFEN. [Suspect]
     Active Substance: IBUPROFEN
     Indication: GOUT
     Dosage: 0.3 G, QD
     Route: 048
     Dates: start: 20210630, end: 20210702

REACTIONS (5)
  - Small intestine ulcer [Unknown]
  - Melaena [Recovered/Resolved]
  - Disease recurrence [Unknown]
  - Abdominal distension [Unknown]
  - Asthenia [Unknown]

NARRATIVE: CASE EVENT DATE: 20210630
